FAERS Safety Report 7536609-6 (Version None)
Quarter: 2011Q2

REPORT INFORMATION
  Report Type: 
  Country: None (occurrence: None)
  Receive Date: 20110609
  Receipt Date: 20110531
  Transmission Date: 20111010
  Serious: Yes (Other)
  Sender: FDA-Public Use
  Company Number: US-PERRIGO-11US004607

PATIENT
  Sex: Female
  Weight: 72.562 kg

DRUGS (2)
  1. CLARINEX [Concomitant]
     Indication: SEASONAL ALLERGY
     Dosage: UNK, PRN
     Route: 048
     Dates: start: 20010601
  2. NITETIME FREE MXD BRY 6HR LIQ 990 [Suspect]
     Indication: NASOPHARYNGITIS
     Dosage: 1.5 TABLESPOONS, ONCE
     Route: 048
     Dates: start: 20110529, end: 20110529

REACTIONS (4)
  - INCORRECT DOSE ADMINISTERED [None]
  - HALLUCINATION [None]
  - ABNORMAL BEHAVIOUR [None]
  - SOMNAMBULISM [None]
